FAERS Safety Report 22231258 (Version 1)
Quarter: 2023Q2

REPORT INFORMATION
  Report Type: Spontaneous
  Country: ES (occurrence: ES)
  Receive Date: 20230420
  Receipt Date: 20230420
  Transmission Date: 20230722
  Serious: Yes (Hospitalization)
  Sender: FDA-Public Use
  Company Number: None

PATIENT
  Age: 82 Year
  Sex: Female
  Weight: 73 kg

DRUGS (13)
  1. OMEPRAZOLE [Suspect]
     Active Substance: OMEPRAZOLE
     Indication: Prophylaxis
     Dosage: 20 MILLIGRAM DAILY; 1 TABLET A DAY OF 20MG, OMEPRAZOL (2141A)
     Route: 065
     Dates: start: 20230306, end: 20230309
  2. SPIRONOLACTONE [Suspect]
     Active Substance: SPIRONOLACTONE
     Indication: Cardiac failure
     Dosage: 25 MILLIGRAM DAILY; 1 TABLET OF 25MG PER DAY,  ESPIRONOLACTONA (326A)
     Route: 065
     Dates: start: 20230306, end: 20230309
  3. VISIPAQUE [Suspect]
     Active Substance: IODIXANOL
     Indication: Arterial catheterisation
     Dosage: 247 CC IN A SINGLE DOSE FOR CATHETERIZATION, 1 VIAL OF 100 ML
     Route: 065
     Dates: start: 20230306, end: 20230306
  4. ATORVASTATIN [Concomitant]
     Active Substance: ATORVASTATIN
     Indication: Dyslipidaemia
     Dosage: ATORVASTATINA (7400A)
     Route: 065
     Dates: start: 20230306
  5. DIGOXIN [Concomitant]
     Active Substance: DIGOXIN
     Indication: Atrial fibrillation
     Dosage: .25 MILLIGRAM DAILY; 1 TABLET OF 0.25MG EVERY 24H, DIGOXINA (770A)
     Route: 065
     Dates: start: 20230306, end: 20230309
  6. METFORMIN [Concomitant]
     Active Substance: METFORMIN HYDROCHLORIDE
     Indication: Type 2 diabetes mellitus
     Dosage: METFORMINA (1359A)
     Route: 065
     Dates: start: 20230307, end: 20230310
  7. METOPROLOL TARTRATE [Concomitant]
     Active Substance: METOPROLOL TARTRATE
     Indication: Atrial fibrillation
     Route: 065
     Dates: start: 20230307, end: 20230310
  8. ASPIRIN [Concomitant]
     Active Substance: ASPIRIN
     Indication: Product used for unknown indication
     Dosage: 30 TABLETS
     Route: 065
     Dates: start: 20220615
  9. PLAVIX [Concomitant]
     Active Substance: CLOPIDOGREL BISULFATE
     Indication: Coronary artery disease
     Route: 065
     Dates: start: 20230306
  10. ELIQUIS [Concomitant]
     Active Substance: APIXABAN
     Indication: Atrial fibrillation
     Route: 065
     Dates: start: 20230306, end: 20230310
  11. HYDROCHLOROTHIAZIDE\TELMISARTAN [Concomitant]
     Active Substance: HYDROCHLOROTHIAZIDE\TELMISARTAN
     Indication: Hypertension
     Dosage: 28 TABLETS, FORM STRENGTH : 80 MG/25 MG
     Route: 065
     Dates: start: 20190913, end: 20230310
  12. FUROSEMIDE [Concomitant]
     Active Substance: FUROSEMIDE
     Indication: Cardiac failure
     Dosage: FUROSEMIDA (1615A)
     Route: 065
     Dates: start: 20230228, end: 20230306
  13. METFORMIN HYDROCHLORIDE\SITAGLIPTIN PHOSPHATE [Concomitant]
     Active Substance: METFORMIN HYDROCHLORIDE\SITAGLIPTIN PHOSPHATE
     Indication: Type 2 diabetes mellitus
     Dosage: FORM STRENGTH : 50 MG/1000 MG
     Route: 065
     Dates: start: 20141108, end: 20230310

REACTIONS (1)
  - Acute kidney injury [Recovered/Resolved]

NARRATIVE: CASE EVENT DATE: 20230310
